FAERS Safety Report 4753377-1 (Version None)
Quarter: 2005Q3

REPORT INFORMATION
  Report Type: 
  Country: None (occurrence: None)
  Receive Date: 20050826
  Receipt Date: 20050823
  Transmission Date: 20060218
  Serious: Yes (Other)
  Sender: FDA-Public Use
  Company Number: JP-SP-2005-01665

PATIENT
  Age: 69 Year
  Sex: Male

DRUGS (1)
  1. IMMUCYST [Suspect]
     Indication: BLADDER CANCER
     Dosage: TOTAL DOSE : 648 MG (8 TIMES)
     Route: 043
     Dates: start: 20050615, end: 20050808

REACTIONS (2)
  - POLLAKIURIA [None]
  - URINARY INCONTINENCE [None]
